FAERS Safety Report 6720189-9 (Version None)
Quarter: 2010Q2

REPORT INFORMATION
  Report Type: 
  Country: None (occurrence: None)
  Receive Date: 20100511
  Receipt Date: 20100430
  Transmission Date: 20101027
  Serious: Yes (Hospitalization)
  Sender: FDA-Public Use
  Company Number: GXKR2010CA04908

PATIENT
  Age: 34 Year
  Sex: Male

DRUGS (6)
  1. CARBAMAZEPINE (NGX) [Suspect]
     Indication: COMPLEX PARTIAL SEIZURES
     Dosage: 1600 MG, DAILY
  2. PARACETAMOL (NGX) [Interacting]
     Indication: MUSCULOSKELETAL PAIN
     Dosage: 2000 MG, UNK
  3. PARACETAMOL (NGX) [Interacting]
     Dosage: 2500 MG, UNK
  4. CLOBAZAM [Concomitant]
     Indication: COMPLEX PARTIAL SEIZURES
     Dosage: 10 MG, DAILY
  5. MESALAZINE [Concomitant]
     Indication: CROHN'S DISEASE
     Dosage: 4 G, DAILY
  6. METHOCARBAMOL [Concomitant]
     Indication: MUSCULOSKELETAL PAIN
     Dosage: 800 MG, UNK

REACTIONS (10)
  - ABDOMINAL PAIN [None]
  - ACUTE HEPATIC FAILURE [None]
  - ANURIA [None]
  - CEREBELLAR SYNDROME [None]
  - DIPLOPIA [None]
  - DRUG INTERACTION [None]
  - GAIT DISTURBANCE [None]
  - RENAL FAILURE ACUTE [None]
  - TREMOR [None]
  - TUBULOINTERSTITIAL NEPHRITIS [None]
